FAERS Safety Report 9675522 (Version 2)
Quarter: 2013Q4

REPORT INFORMATION
  Report Type: Spontaneous
  Country: CO (occurrence: CO)
  Receive Date: 20131107
  Receipt Date: 20131112
  Transmission Date: 20140711
  Serious: Yes (Other)
  Sender: FDA-Public Use
  Company Number: CO-AMGEN-COLSP2013077632

PATIENT
  Age: 67 Year
  Sex: Female

DRUGS (4)
  1. ENBREL [Suspect]
     Indication: RHEUMATOID ARTHRITIS
     Dosage: 50 MG, WEEKLY
     Route: 058
     Dates: start: 201301
  2. METHOTREXATE [Suspect]
     Indication: RHEUMATOID ARTHRITIS
     Dosage: 4 TABLETS, WEEKLY
     Route: 048
     Dates: start: 201301
  3. ARAVA [Suspect]
     Indication: RHEUMATOID ARTHRITIS
     Dosage: 20 MG, WEEKLY
     Route: 048
     Dates: start: 201301
  4. EUTIROX [Concomitant]
     Indication: THYROID DISORDER
     Dosage: 50 UG, 1X/DAY
     Route: 048

REACTIONS (4)
  - Osteoporosis [Unknown]
  - Decreased immune responsiveness [Unknown]
  - C-reactive protein decreased [Unknown]
  - Toxic skin eruption [Unknown]
